FAERS Safety Report 18022098 (Version 2)
Quarter: 2020Q3

REPORT INFORMATION
  Report Type: Spontaneous
  Country: TR (occurrence: TR)
  Receive Date: 20200714
  Receipt Date: 20200721
  Transmission Date: 20201103
  Serious: Yes (Hospitalization, Other)
  Sender: FDA-Public Use
  Company Number: TR-PFIZER INC-2020267312

PATIENT
  Age: 12 Year
  Sex: Male

DRUGS (3)
  1. METHOTREXATE SODIUM. [Suspect]
     Active Substance: METHOTREXATE SODIUM
     Dosage: MTX (12 MG ACCORDING TO AGE) TREATMENTS AT A TWO WEEKS INTERVAL
     Route: 037
  2. LEUCOVORIN [CALCIUM FOLINATE] [Concomitant]
     Active Substance: LEUCOVORIN
     Dosage: 15 MG/M2 AT 42ND, 48TH AND 54TH HOURS ACCORDING TO THE PROTOCOL
  3. METHOTREXATE SODIUM. [Suspect]
     Active Substance: METHOTREXATE SODIUM
     Dosage: FOUR TIMES OF HIGH DOSE MTX (5GR/M2)
     Route: 037

REACTIONS (5)
  - Febrile neutropenia [Recovered/Resolved]
  - Toxic encephalopathy [Recovered/Resolved]
  - Prescribed overdose [Unknown]
  - Off label use [Unknown]
  - Product use issue [Unknown]
